FAERS Safety Report 8203665-1 (Version None)
Quarter: 2012Q1

REPORT INFORMATION
  Report Type: 
  Country: None (occurrence: None)
  Receive Date: 20120308
  Receipt Date: 20120224
  Transmission Date: 20120608
  Serious: No
  Sender: FDA-Public Use
  Company Number: OPER20120180

PATIENT
  Sex: Male

DRUGS (2)
  1. PERCOCET [Suspect]
     Indication: BACK PAIN
     Dosage: ORAL
     Route: 048
  2. OPANA ER [Suspect]
     Indication: BACK PAIN
     Dosage: 40 MG, 2 IN 1 D, ORAL
     Route: 048
     Dates: end: 20120201

REACTIONS (2)
  - DRUG INEFFECTIVE [None]
  - PRODUCT QUALITY ISSUE [None]
